FAERS Safety Report 14147976 (Version 1)
Quarter: 2017Q4

REPORT INFORMATION
  Report Type: Report from Study
  Country: None (occurrence: US)
  Receive Date: 20171101
  Receipt Date: 20171101
  Transmission Date: 20180321
  Serious: Yes (Other)
  Sender: FDA-Public Use
  Company Number: US-ABBVIE-17K-163-1897850-00

PATIENT
  Sex: Male

DRUGS (1)
  1. HUMIRA [Suspect]
     Active Substance: ADALIMUMAB
     Indication: PSORIASIS
     Route: 058

REACTIONS (7)
  - Postoperative hernia [Not Recovered/Not Resolved]
  - Intestinal operation [Unknown]
  - Wound infection staphylococcal [Unknown]
  - Excessive cerumen production [Recovering/Resolving]
  - Intestinal cyst [Unknown]
  - Arthritis [Not Recovered/Not Resolved]
  - Chronic obstructive pulmonary disease [Unknown]

NARRATIVE: CASE EVENT DATE: 2012
